FAERS Safety Report 4717290-8 (Version None)
Quarter: 2005Q3

REPORT INFORMATION
  Report Type: 
  Country: None (occurrence: None)
  Receive Date: 20050715
  Receipt Date: 20050705
  Transmission Date: 20060218
  Serious: Yes (Hospitalization)
  Sender: FDA-Public Use
  Company Number: 2005095624

PATIENT
  Age: 72 Year
  Sex: Male

DRUGS (3)
  1. AZITHROMYCIN [Suspect]
     Indication: CHRONIC OBSTRUCTIVE PULMONARY DISEASE
     Dosage: (DAILY), ORAL
     Route: 048
  2. ALL OTHER THERAPEUTIC PRODUCUTS (ALL OTHER THERAPEUTIC PRODUCTS) [Concomitant]
  3. SPIRIVA ^PFIZER^ (TIOTROPIUM BROMIDE) [Concomitant]

REACTIONS (5)
  - ANOREXIA [None]
  - ASTHENIA [None]
  - GENERAL PHYSICAL HEALTH DETERIORATION [None]
  - HAEMOLYTIC ANAEMIA [None]
  - RESPIRATORY TRACT INFECTION BACTERIAL [None]
